FAERS Safety Report 5069722-6 (Version None)
Quarter: 2006Q3

REPORT INFORMATION
  Report Type: 
  Country: None (occurrence: None)
  Receive Date: 20060803
  Receipt Date: 20060728
  Transmission Date: 20061208
  Serious: Yes (Death)
  Sender: FDA-Public Use
  Company Number: TR-BRISTOL-MYERS SQUIBB COMPANY-13462015

PATIENT
  Age: 5 Year
  Sex: Male

DRUGS (9)
  1. VINCRISTINE SULFATE [Suspect]
     Indication: EWING'S SARCOMA
  2. CYCLOPHOSPHAMIDE [Suspect]
     Indication: EWING'S SARCOMA
  3. CISPLATIN [Suspect]
     Indication: EWING'S SARCOMA
  4. IFOSFAMIDE [Suspect]
     Indication: EWING'S SARCOMA
  5. ADRIAMYCIN PFS [Suspect]
     Indication: EWING'S SARCOMA
  6. ADRIAMYCIN PFS [Suspect]
     Indication: ACUTE LYMPHOCYTIC LEUKAEMIA
  7. DACTINOMYCIN [Suspect]
     Indication: EWING'S SARCOMA
  8. DACTINOMYCIN [Suspect]
     Indication: ACUTE LYMPHOCYTIC LEUKAEMIA
  9. RADIATION THERAPY [Suspect]
     Indication: EWING'S SARCOMA

REACTIONS (2)
  - BONE SARCOMA [None]
  - TREATMENT RELATED SECONDARY MALIGNANCY [None]
